FAERS Safety Report 7957026-0 (Version None)
Quarter: 2011Q4

REPORT INFORMATION
  Report Type: 
  Country: None (occurrence: None)
  Receive Date: 20111205
  Receipt Date: 20111205
  Transmission Date: 20120403
  Serious: Yes (Death, Other)
  Sender: FDA-Public Use
  Company Number: None

PATIENT
  Age: 70 Year
  Sex: Male
  Weight: 81.646 kg

DRUGS (1)
  1. ATENOLOL [Suspect]
     Indication: HYPERTENSION
     Dosage: ONE
     Route: 048
     Dates: start: 20110525, end: 20110819

REACTIONS (3)
  - BURNING SENSATION [None]
  - OEDEMA PERIPHERAL [None]
  - UNEVALUABLE EVENT [None]
